FAERS Safety Report 18234365 (Version 1)
Quarter: 2020Q3

REPORT INFORMATION
  Report Type: Spontaneous
  Country: DE (occurrence: DE)
  Receive Date: 20200904
  Receipt Date: 20200904
  Transmission Date: 20201103
  Serious: Yes (Other)
  Sender: FDA-Public Use
  Company Number: DE-ELI_LILLY_AND_COMPANY-DE202008009955

PATIENT
  Age: 30 Year
  Sex: Female

DRUGS (11)
  1. PEMBROLIZUMAB. [Suspect]
     Active Substance: PEMBROLIZUMAB
     Dosage: UNK, UNKNOWN
     Route: 065
     Dates: start: 20190412
  2. PEMBROLIZUMAB. [Suspect]
     Active Substance: PEMBROLIZUMAB
     Dosage: UNK UNK, UNKNOWN
     Route: 065
     Dates: start: 20190208
  3. PEMBROLIZUMAB. [Suspect]
     Active Substance: PEMBROLIZUMAB
     Dosage: UNK UNK, UNKNOWN
     Route: 065
     Dates: start: 20200523
  4. PEMBROLIZUMAB. [Suspect]
     Active Substance: PEMBROLIZUMAB
     Dosage: UNK UNK, UNKNOWN
     Route: 065
     Dates: start: 20190301
  5. PEMETREXED. [Suspect]
     Active Substance: PEMETREXED
     Indication: NON-SMALL CELL LUNG CANCER
     Dosage: UNK, UNKNOWN
     Route: 065
     Dates: start: 20181227
  6. PEMBROLIZUMAB. [Suspect]
     Active Substance: PEMBROLIZUMAB
     Dosage: UNK UNK, UNKNOWN
     Route: 065
     Dates: start: 20190503
  7. PEMETREXED. [Suspect]
     Active Substance: PEMETREXED
     Dosage: UNK UNK, UNKNOWN
     Route: 065
     Dates: start: 20190131, end: 201902
  8. CARBOPLATIN. [Suspect]
     Active Substance: CARBOPLATIN
     Indication: NON-SMALL CELL LUNG CANCER
     Dosage: UNK UNK, UNKNOWN
     Route: 065
     Dates: start: 20181227
  9. PEMBROLIZUMAB. [Suspect]
     Active Substance: PEMBROLIZUMAB
     Indication: NON-SMALL CELL LUNG CANCER
     Dosage: UNK UNK, UNKNOWN
     Route: 065
     Dates: start: 20181227
  10. PEMBROLIZUMAB. [Suspect]
     Active Substance: PEMBROLIZUMAB
     Dosage: UNK
     Dates: start: 20190118
  11. CARBOPLATIN. [Suspect]
     Active Substance: CARBOPLATIN
     Dosage: UNK UNK, UNKNOWN
     Route: 065
     Dates: start: 20190131, end: 201902

REACTIONS (3)
  - Drug intolerance [Unknown]
  - Left ventricular dysfunction [Unknown]
  - Myocarditis [Unknown]

NARRATIVE: CASE EVENT DATE: 201902
